FAERS Safety Report 24350751 (Version 1)
Quarter: 2024Q3

REPORT INFORMATION
  Report Type: Report from Study
  Country: CA (occurrence: CA)
  Receive Date: 20240923
  Receipt Date: 20240923
  Transmission Date: 20241017
  Serious: No
  Sender: ROCHE
  Company Number: CA-ROCHE-3524700

PATIENT
  Age: 54 Year
  Sex: Female
  Weight: 72.0 kg

DRUGS (1)
  1. HERCEPTIN [Suspect]
     Active Substance: TRASTUZUMAB
     Indication: Neoadjuvant therapy
     Route: 041
     Dates: start: 20231103, end: 20231222

REACTIONS (2)
  - Off label use [Unknown]
  - No adverse event [Unknown]
